FAERS Safety Report 14252161 (Version 4)
Quarter: 2018Q4

REPORT INFORMATION
  Report Type: Report from Study
  Country: US (occurrence: US)
  Receive Date: 20171205
  Receipt Date: 20181017
  Transmission Date: 20190204
  Serious: Yes (Other)
  Sender: FDA-Public Use
  Company Number: US-UCBSA-2017026393

PATIENT
  Sex: Female

DRUGS (15)
  1. LEVETIRACETAM. [Suspect]
     Active Substance: LEVETIRACETAM
     Dosage: 1000 MG, 2X/DAY (BID)
     Dates: start: 201612
  2. KEPPRA [Suspect]
     Active Substance: LEVETIRACETAM
     Indication: EPILEPSY
     Dosage: UNK
  3. ADVIL [Concomitant]
     Active Substance: IBUPROFEN
     Indication: PYREXIA
     Dosage: UNK
  4. CANNABIDIOL [Concomitant]
     Active Substance: CANNABIDIOL
     Indication: PRODUCT USED FOR UNKNOWN INDICATION
  5. CANNABIS [Concomitant]
     Active Substance: CANNABIS SATIVA SUBSP. INDICA TOP
     Indication: PRODUCT USED FOR UNKNOWN INDICATION
  6. MIDAZOLAM [Concomitant]
     Active Substance: MIDAZOLAM HYDROCHLORIDE
     Indication: PRODUCT USED FOR UNKNOWN INDICATION
  7. LEVETIRACETAM. [Suspect]
     Active Substance: LEVETIRACETAM
     Dosage: INCREASED DOSE
  8. VIMPAT [Suspect]
     Active Substance: LACOSAMIDE
     Indication: PRODUCT USED FOR UNKNOWN INDICATION
     Dosage: UNK
     Dates: start: 20161226
  9. LEVETIRACETAM. [Suspect]
     Active Substance: LEVETIRACETAM
     Indication: SEIZURE
     Dosage: UNK
  10. VALIUM [Concomitant]
     Active Substance: DIAZEPAM
     Indication: PRODUCT USED FOR UNKNOWN INDICATION
  11. PHENYTOIN. [Concomitant]
     Active Substance: PHENYTOIN
     Indication: PRODUCT USED FOR UNKNOWN INDICATION
     Dosage: UNK
  12. FRISIUM [Concomitant]
     Active Substance: CLOBAZAM
     Indication: PRODUCT USED FOR UNKNOWN INDICATION
  13. KEPPRA [Suspect]
     Active Substance: LEVETIRACETAM
     Dosage: UNK
     Dates: start: 201612
  14. VIMPAT [Suspect]
     Active Substance: LACOSAMIDE
     Dosage: 100 MG, 2X/DAY (BID)
     Route: 048
  15. DILANTIN [Concomitant]
     Active Substance: PHENYTOIN
     Indication: PRODUCT USED FOR UNKNOWN INDICATION

REACTIONS (6)
  - Vomiting [Unknown]
  - Drug ineffective [Unknown]
  - Mood swings [Recovered/Resolved]
  - Status epilepticus [Unknown]
  - Autoimmune hepatitis [Unknown]
  - Seizure [Recovering/Resolving]
